FAERS Safety Report 14193484 (Version 1)
Quarter: 2017Q4

REPORT INFORMATION
  Report Type: Spontaneous
  Country: US (occurrence: US)
  Receive Date: 20171115
  Receipt Date: 20171115
  Transmission Date: 20180321
  Serious: No
  Sender: FDA-Public Use
  Company Number: US-BAUSCH-BL-2017-003929

PATIENT
  Sex: Male
  Weight: 84.9 kg

DRUGS (1)
  1. XENAZINE [Suspect]
     Active Substance: TETRABENAZINE
     Indication: CHOREA
     Dosage: 1 TABLET TWICE DAILY
     Route: 048
     Dates: start: 201504

REACTIONS (2)
  - Fatigue [Unknown]
  - Loss of libido [Unknown]
